FAERS Safety Report 5650298-7 (Version None)
Quarter: 2008Q1

REPORT INFORMATION
  Report Type: 
  Country: None (occurrence: None)
  Receive Date: 20080131
  Receipt Date: 20071130
  Transmission Date: 20080703
  Serious: No
  Sender: FDA-Public Use
  Company Number: US200712000325

PATIENT
  Age: 71 Year
  Sex: Male
  Weight: 86.2 kg

DRUGS (5)
  1. BYETTA [Suspect]
     Indication: DIABETES MELLITUS
     Dosage: SEE IMAGE
     Route: 058
     Dates: start: 20070501, end: 20070701
  2. BYETTA [Suspect]
     Indication: DIABETES MELLITUS
     Dosage: SEE IMAGE
     Route: 058
     Dates: start: 20070701
  3. BYETTA [Suspect]
  4. GLUCOVANCE [Concomitant]
  5. AVANDIA [Concomitant]

REACTIONS (3)
  - BLOOD GLUCOSE DECREASED [None]
  - BLOOD GLUCOSE INCREASED [None]
  - INCORRECT DOSE ADMINISTERED [None]
